FAERS Safety Report 9786044 (Version 2)
Quarter: 2014Q1

REPORT INFORMATION
  Report Type: Spontaneous
  Country: FR (occurrence: FR)
  Receive Date: 20131227
  Receipt Date: 20140110
  Transmission Date: 20141002
  Serious: Yes (Other)
  Sender: FDA-Public Use
  Company Number: FR-TEVA-452038ISR

PATIENT
  Age: 70 Year
  Sex: Female

DRUGS (2)
  1. TRAMADOL [Suspect]
     Route: 065
  2. HYDROCHLOROTHIAZIDE [Concomitant]
     Route: 065

REACTIONS (6)
  - Altered state of consciousness [Recovered/Resolved]
  - Convulsion [Recovered/Resolved]
  - Inappropriate antidiuretic hormone secretion [Recovered/Resolved]
  - Hyponatraemia [Recovered/Resolved]
  - General physical health deterioration [Recovered/Resolved]
  - Dyspepsia [Recovered/Resolved]
